FAERS Safety Report 19571322 (Version 1)
Quarter: 2021Q3

REPORT INFORMATION
  Report Type: Report from Study
  Country: BR (occurrence: BR)
  Receive Date: 20210715
  Receipt Date: 20210715
  Transmission Date: 20211014
  Serious: Yes (Other)
  Sender: FDA-Public Use
  Company Number: NVSC2021BR135650

PATIENT
  Sex: Female
  Weight: 74 kg

DRUGS (6)
  1. COSENTYX [Suspect]
     Active Substance: SECUKINUMAB
     Indication: PSORIATIC ARTHROPATHY
     Dosage: 300 MG, QW(02 FILLED PENS OF 150MG EACH)
     Route: 058
     Dates: start: 20201219
  2. COSENTYX [Suspect]
     Active Substance: SECUKINUMAB
     Dosage: 300 MG, QW(02 FILLED PENS OF 150MG EACH)
     Route: 058
     Dates: start: 20210102
  3. COSENTYX [Suspect]
     Active Substance: SECUKINUMAB
     Dosage: 300 MG, QW(02 FILLED PENS OF 150MG EACH)
     Route: 058
     Dates: start: 20210116
  4. COSENTYX [Suspect]
     Active Substance: SECUKINUMAB
     Dosage: 300 MG, QMO(02 FILLED PENS OF 150MG EACH)
     Route: 065
     Dates: start: 20210213, end: 20210508
  5. COSENTYX [Suspect]
     Active Substance: SECUKINUMAB
     Dosage: 300 MG, QW(02 FILLED PENS OF 150MG EACH)
     Route: 058
     Dates: start: 20201226
  6. COSENTYX [Suspect]
     Active Substance: SECUKINUMAB
     Dosage: 300 MG, QW(02 FILLED PENS OF 150MG EACH)
     Route: 058
     Dates: start: 20210109

REACTIONS (3)
  - Arthralgia [Recovering/Resolving]
  - Drug ineffective [Recovered/Resolved]
  - Hand fracture [Recovering/Resolving]

NARRATIVE: CASE EVENT DATE: 2021
